FAERS Safety Report 6297384-9 (Version None)
Quarter: 2009Q3

REPORT INFORMATION
  Report Type: 
  Country: None (occurrence: None)
  Receive Date: 20090805
  Receipt Date: 20090729
  Transmission Date: 20100115
  Serious: Yes (Hospitalization)
  Sender: FDA-Public Use
  Company Number: PHEH2009US08055

PATIENT
  Sex: Male
  Weight: 125.17 kg

DRUGS (7)
  1. AFINITOR [Suspect]
     Indication: RENAL CELL CARCINOMA
     Dosage: 10 MG, QD
     Route: 048
     Dates: start: 20090706
  2. AFINITOR [Suspect]
     Indication: GLIOBLASTOMA MULTIFORME
  3. KEPPRA [Concomitant]
  4. HYDROCHLOROTHIAZIDE [Concomitant]
  5. VICODIN [Concomitant]
  6. BEVACIZUMAB [Concomitant]
  7. DIPHENHYDRAMINE HCL [Concomitant]
     Dosage: UNK
     Dates: start: 20090706

REACTIONS (5)
  - CHILLS [None]
  - HYPERSENSITIVITY [None]
  - HYPOTENSION [None]
  - OXYGEN SATURATION DECREASED [None]
  - TREMOR [None]
